FAERS Safety Report 16780284 (Version 1)
Quarter: 2019Q3

REPORT INFORMATION
  Report Type: Spontaneous
  Country: US (occurrence: US)
  Receive Date: 20190906
  Receipt Date: 20190906
  Transmission Date: 20191005
  Serious: Yes (Hospitalization, Disabling)
  Sender: FDA-Public Use
  Company Number: US-JNJFOC-20190903900

PATIENT
  Age: 64 Year
  Sex: Male

DRUGS (2)
  1. PALBOCICLIB [Suspect]
     Active Substance: PALBOCICLIB
     Dosage: 100 MG, QD
     Route: 048
     Dates: start: 20181110
  2. IMBRUVICA [Suspect]
     Active Substance: IBRUTINIB
     Indication: MANTLE CELL LYMPHOMA REFRACTORY
     Dosage: 560 MG, QD
     Route: 048
     Dates: start: 20181110

REACTIONS (7)
  - C-reactive protein increased [Unknown]
  - Hypothermia [Unknown]
  - Skin infection [Not Recovered/Not Resolved]
  - Wound complication [Unknown]
  - Dry skin [Unknown]
  - Obesity [Unknown]
  - Red blood cell sedimentation rate increased [Unknown]

NARRATIVE: CASE EVENT DATE: 20190803
